FAERS Safety Report 10927286 (Version 2)
Quarter: 2015Q2

REPORT INFORMATION
  Report Type: Spontaneous
  Country: RU (occurrence: RU)
  Receive Date: 20150318
  Receipt Date: 20150409
  Transmission Date: 20150821
  Serious: Yes (Other)
  Sender: FDA-Public Use
  Company Number: ALCN2015RU001724

PATIENT
  Sex: Male

DRUGS (1)
  1. BETOPTIC [Suspect]
     Active Substance: BETAXOLOL HYDROCHLORIDE
     Dosage: UNK
     Route: 047

REACTIONS (5)
  - Cardiac discomfort [Unknown]
  - Thirst [Unknown]
  - Mental disorder [Unknown]
  - Agitation [Unknown]
  - Loss of consciousness [Unknown]
